FAERS Safety Report 7573167-4 (Version None)
Quarter: 2011Q2

REPORT INFORMATION
  Report Type: 
  Country: None (occurrence: None)
  Receive Date: 20110627
  Receipt Date: 20110616
  Transmission Date: 20111010
  Serious: No
  Sender: FDA-Public Use
  Company Number: FR-JNJFOC-20110606793

PATIENT
  Age: 50 Year
  Sex: Male

DRUGS (1)
  1. RISPERDAL CONSTA [Suspect]
     Indication: PRODUCT USED FOR UNKNOWN INDICATION
     Route: 030

REACTIONS (5)
  - DEVICE MALFUNCTION [None]
  - LIQUID PRODUCT PHYSICAL ISSUE [None]
  - DRUG ADMINISTERED AT INAPPROPRIATE SITE [None]
  - EXPOSURE TO CONTAMINATED DEVICE [None]
  - NEEDLE ISSUE [None]
